FAERS Safety Report 19477607 (Version 1)
Quarter: 2021Q2

REPORT INFORMATION
  Report Type: Spontaneous
  Country: CA (occurrence: CA)
  Receive Date: 20210630
  Receipt Date: 20210630
  Transmission Date: 20210717
  Serious: Yes (Hospitalization)
  Sender: FDA-Public Use
  Company Number: CA-MYLANLABS-2021M1038631

PATIENT
  Age: 68 Year
  Sex: Female
  Weight: 54 kg

DRUGS (3)
  1. OGIVRI [Suspect]
     Active Substance: TRASTUZUMAB-DKST
     Indication: BREAST CANCER
     Dosage: 430 MILLIGRAM ONCE
     Route: 042
  2. CARBOPLATIN. [Concomitant]
     Active Substance: CARBOPLATIN
     Dosage: UNK
     Route: 042
  3. DOCETAXEL. [Concomitant]
     Active Substance: DOCETAXEL
     Dosage: UNK

REACTIONS (2)
  - Cardiac failure [Recovering/Resolving]
  - Transient ischaemic attack [Recovering/Resolving]
